FAERS Safety Report 7734949-9 (Version None)
Quarter: 2011Q3

REPORT INFORMATION
  Report Type: 
  Country: None (occurrence: None)
  Receive Date: 20110907
  Receipt Date: 20110830
  Transmission Date: 20111222
  Serious: Yes (Other)
  Sender: FDA-Public Use
  Company Number: PHHY2011US68103

PATIENT
  Sex: Female
  Weight: 144 kg

DRUGS (11)
  1. BROMDAY [Concomitant]
     Dosage: 9 %, UNK
  2. AMITIZA [Concomitant]
     Dosage: 24 UG, UNK
  3. IBUPROFEN (ADVIL) [Concomitant]
     Dosage: 200 UG, UNK
  4. RESTASIS [Concomitant]
     Dosage: 0.05 %, UNK
  5. VIVELLE [Concomitant]
     Dosage: 0.05 MG, UNK
  6. VITAMIN D [Concomitant]
     Dosage: UNK UKN, OT
  7. GILENYA [Suspect]
     Indication: MULTIPLE SCLEROSIS
     Dosage: 0.5 MG, QD
     Route: 048
     Dates: start: 20110620
  8. AMANTADINE HCL [Concomitant]
     Dosage: 100 MG, UNK
  9. ACIDOPHILUS ^ZYMA^ [Concomitant]
     Dosage: UNK UKN, OT
  10. CRANBERRY CAP [Concomitant]
     Dosage: 1000 MG, UNK
  11. LYRICA [Concomitant]
     Dosage: 75 MG, UNK

REACTIONS (7)
  - CONFUSIONAL STATE [None]
  - RASH [None]
  - FLUID RETENTION [None]
  - NERVOUSNESS [None]
  - ABDOMINAL DISCOMFORT [None]
  - ABDOMINAL DISTENSION [None]
  - VISUAL IMPAIRMENT [None]
